FAERS Safety Report 10778969 (Version 6)
Quarter: 2015Q2

REPORT INFORMATION
  Report Type: Spontaneous
  Country: US (occurrence: None)
  Receive Date: 20150206
  Receipt Date: 20150619
  Transmission Date: 20150821
  Serious: Yes (Life-Threatening, Hospitalization, Other)
  Sender: FDA-Public Use
  Company Number: ADR-2015-00254

PATIENT
  Age: 40 Year
  Sex: Male

DRUGS (3)
  1. DILAUDID [Suspect]
     Active Substance: HYDROMORPHONE HYDROCHLORIDE
  2. BACLOFEN INTRATHECAL [Suspect]
     Active Substance: BACLOFEN
     Indication: PAIN
  3. MARCAINE [Suspect]
     Active Substance: BUPIVACAINE HYDROCHLORIDE

REACTIONS (13)
  - Device ineffective [None]
  - Implant site pain [None]
  - Hernia [None]
  - Implant site extravasation [None]
  - Blood pressure increased [None]
  - Cardiac arrest [None]
  - Abscess [None]
  - Cardiac disorder [None]
  - Abdominal pain [None]
  - Treatment noncompliance [None]
  - Troponin increased [None]
  - Myocardial necrosis marker increased [None]
  - Device infusion issue [None]
